FAERS Safety Report 6260122-X (Version None)
Quarter: 2009Q3

REPORT INFORMATION
  Report Type: 
  Country: None (occurrence: None)
  Receive Date: 20090708
  Receipt Date: 20090629
  Transmission Date: 20100115
  Serious: Yes (Hospitalization, Disabling, Other)
  Sender: FDA-Public Use
  Company Number: US-ELI_LILLY_AND_COMPANY-US200906006712

PATIENT
  Sex: Female
  Weight: 90.703 kg

DRUGS (7)
  1. BYETTA [Suspect]
     Indication: TYPE 2 DIABETES MELLITUS
     Dosage: 5 UG, 2/D
     Route: 058
     Dates: start: 20050101
  2. BYETTA [Suspect]
     Dosage: 10 UG, 2/D
     Route: 058
  3. METFORMIN HCL [Concomitant]
     Indication: TYPE 2 DIABETES MELLITUS
     Dosage: 1000 MG, EACH MORNING
     Route: 048
  4. METFORMIN HCL [Concomitant]
     Dosage: 1500 MG, EACH EVENING
     Route: 048
  5. ASPIRIN [Concomitant]
     Indication: PAIN
  6. FISH OIL [Concomitant]
     Indication: SUPPLEMENTATION THERAPY
  7. CALCIUM [Concomitant]
     Indication: SUPPLEMENTATION THERAPY

REACTIONS (8)
  - ARTHRALGIA [None]
  - BLOOD GLUCOSE DECREASED [None]
  - JOINT INJURY [None]
  - PAIN IN EXTREMITY [None]
  - ROAD TRAFFIC ACCIDENT [None]
  - SHOULDER ARTHROPLASTY [None]
  - SYNCOPE [None]
  - UPPER LIMB FRACTURE [None]
